FAERS Safety Report 7015186-2 (Version None)
Quarter: 2010Q3

REPORT INFORMATION
  Report Type: 
  Country: None (occurrence: None)
  Receive Date: 20100927
  Receipt Date: 20100217
  Transmission Date: 20110219
  Serious: Yes (Other)
  Sender: FDA-Public Use
  Company Number: US-ASTRAZENECA-2010SE06934

PATIENT
  Age: 63 Year
  Sex: Female
  Weight: 77.1 kg

DRUGS (5)
  1. ARIMIDEX [Suspect]
     Indication: BREAST CANCER
     Route: 048
     Dates: start: 20060601, end: 20100201
  2. EFFEXOR XR [Concomitant]
  3. FAMOTIDINE [Concomitant]
  4. IBUPROFEN [Concomitant]
  5. MULTIVIT [Concomitant]

REACTIONS (2)
  - BODY HEIGHT DECREASED [None]
  - BREAST CANCER METASTATIC [None]
